FAERS Safety Report 9123774 (Version 2)
Quarter: 2013Q2

REPORT INFORMATION
  Report Type: Spontaneous
  Country: US (occurrence: US)
  Receive Date: 20130116
  Receipt Date: 20130408
  Transmission Date: 20140414
  Serious: Yes (Hospitalization, Other)
  Sender: FDA-Public Use
  Company Number: US-BAYER-2013-004480

PATIENT
  Age: 28 Year
  Sex: Female

DRUGS (6)
  1. YASMIN [Suspect]
  2. OCELLA [Suspect]
  3. AXERT [Concomitant]
     Indication: MIGRAINE
     Dosage: 12.5 MG, PRN
  4. XANAX [Concomitant]
     Indication: PANIC ATTACK
     Dosage: 0.25 MG, PRN
  5. XANAX [Concomitant]
     Indication: INSOMNIA
  6. DILAUDID [Concomitant]
     Indication: PAIN

REACTIONS (3)
  - Pulmonary embolism [Recovering/Resolving]
  - Pelvic venous thrombosis [None]
  - Cholecystitis chronic [None]
